FAERS Safety Report 4730400-1 (Version None)
Quarter: 2005Q3

REPORT INFORMATION
  Report Type: 
  Country: None (occurrence: None)
  Receive Date: 20050801
  Receipt Date: 20050415
  Transmission Date: 20060218
  Serious: Yes (Life-Threatening, Hospitalization, Disabling)
  Sender: FDA-Public Use
  Company Number: US-MERCK-0504USA03347

PATIENT
  Age: 63 Year
  Sex: Male
  Weight: 90 kg

DRUGS (9)
  1. CARDURA [Concomitant]
     Route: 065
     Dates: start: 19990811, end: 20000416
  2. PREVACID [Concomitant]
     Route: 065
  3. ALLEGRA [Concomitant]
     Route: 065
  4. LISINOPRIL [Suspect]
     Route: 065
  5. ZOCOR [Suspect]
     Route: 065
  6. VIOXX [Suspect]
     Indication: ARTHRITIS
     Route: 048
     Dates: start: 19990601, end: 20000301
  7. VIOXX [Suspect]
     Route: 048
     Dates: start: 20000301, end: 20040901
  8. VIOXX [Suspect]
     Indication: OSTEOARTHRITIS
     Route: 048
     Dates: start: 19990601, end: 20000301
  9. VIOXX [Suspect]
     Route: 048
     Dates: start: 20000301, end: 20040901

REACTIONS (32)
  - ASTHENIA [None]
  - BACK PAIN [None]
  - BLOOD CHOLESTEROL INCREASED [None]
  - BLOOD PRESSURE DECREASED [None]
  - BRONCHITIS ACUTE [None]
  - CARDIAC FAILURE CONGESTIVE [None]
  - CHEST DISCOMFORT [None]
  - CORONARY ARTERY ATHEROSCLEROSIS [None]
  - DEPRESSION [None]
  - DIABETES MELLITUS [None]
  - DIVERTICULUM [None]
  - DIZZINESS POSTURAL [None]
  - DYSPHAGIA [None]
  - DYSPNOEA [None]
  - FATIGUE [None]
  - FEELING ABNORMAL [None]
  - GASTROINTESTINAL HAEMORRHAGE [None]
  - HEPATOJUGULAR REFLUX [None]
  - HYPERLIPIDAEMIA [None]
  - INFLAMMATION [None]
  - ISCHAEMIC CARDIOMYOPATHY [None]
  - MITRAL VALVE INCOMPETENCE [None]
  - MYALGIA [None]
  - MYOCARDIAL INFARCTION [None]
  - OEDEMA [None]
  - PAIN IN EXTREMITY [None]
  - PAIN IN JAW [None]
  - PULMONARY OEDEMA [None]
  - RHINITIS ALLERGIC [None]
  - THROMBOSIS [None]
  - TRICUSPID VALVE INCOMPETENCE [None]
  - VENTRICULAR EXTRASYSTOLES [None]
